FAERS Safety Report 9054760 (Version 2)
Quarter: 2013Q1

REPORT INFORMATION
  Report Type: Spontaneous
  Country: US (occurrence: US)
  Receive Date: 20130208
  Receipt Date: 20130301
  Transmission Date: 20140127
  Serious: Yes (Death, Other)
  Sender: FDA-Public Use
  Company Number: US-NAPPMUNDI-USA-2013-0098457

PATIENT
  Age: 20 Year
  Sex: Male
  Weight: 84.81 kg

DRUGS (4)
  1. OXYCODONE HYDROCHLORIDE (SIMILAR TO NDA 22-272) [Suspect]
     Indication: DRUG ABUSE
     Dosage: UNK UNK, SEE TEXT
     Route: 048
     Dates: start: 201202
  2. OXYCODONE HYDROCHLORIDE (SIMILAR TO NDA 22-272) [Suspect]
     Indication: INSOMNIA
  3. COCAINE [Suspect]
     Indication: SUBSTANCE ABUSE
  4. CANNABIS [Suspect]
     Indication: SUBSTANCE ABUSE

REACTIONS (3)
  - Accidental overdose [Fatal]
  - Depressed level of consciousness [Fatal]
  - Substance abuse [Unknown]
